FAERS Safety Report 8758804 (Version 1)
Quarter: 2012Q4

REPORT INFORMATION
  Report Type: 
  Country: US (occurrence: US)
  Receive Date: 20120829
  Receipt Date: 20120829
  Transmission Date: 20130627
  Serious: Yes (Other)
  Sender: FDA-Public Use
  Company Number: US-JNJFOC-20120801008

PATIENT
  Age: 17 Year
  Sex: Female
  Weight: 68.86 kg

DRUGS (12)
  1. REMICADE [Suspect]
     Indication: COLITIS ULCERATIVE
     Dosage: with 250 cc normal saline
     Route: 042
     Dates: start: 20120730
  2. REMICADE [Suspect]
     Indication: CROHN^S DISEASE
     Dosage: with 250 cc normal saline
     Route: 042
     Dates: start: 20120730
  3. BENADRYL [Concomitant]
     Indication: PREMEDICATION
     Route: 048
     Dates: start: 20120730
  4. TYLENOL [Concomitant]
     Indication: PREMEDICATION
     Route: 048
     Dates: start: 20120730
  5. SOLU-MEDROL [Concomitant]
     Indication: PREMEDICATION
     Dosage: 50 cc/normal saline
     Route: 042
  6. KEFLEX [Concomitant]
     Indication: NAIL INFECTION
     Route: 065
  7. FERROUS GLUCONATE [Concomitant]
     Indication: ANAEMIA
     Route: 065
  8. ANUSOL HC [Concomitant]
     Indication: RECTAL HAEMORRHAGE
     Route: 065
  9. PREDNISONE [Concomitant]
     Route: 065
  10. STRATTERA [Concomitant]
     Route: 065
  11. ABILIFY [Concomitant]
     Route: 065
  12. DIGESTIVE ENZYMES [Concomitant]
     Route: 065

REACTIONS (6)
  - Infusion related reaction [Recovering/Resolving]
  - Chest discomfort [Recovered/Resolved]
  - Throat tightness [Recovered/Resolved]
  - Flushing [Recovering/Resolving]
  - Malaise [Recovered/Resolved]
  - Dizziness [Recovered/Resolved]
